FAERS Safety Report 4913490-2 (Version None)
Quarter: 2006Q1

REPORT INFORMATION
  Report Type: 
  Country: None (occurrence: None)
  Receive Date: 20060216
  Receipt Date: 20051130
  Transmission Date: 20060701
  Serious: Yes (Life-Threatening, Hospitalization, Disabling)
  Sender: FDA-Public Use
  Company Number: NO-SANOFI-SYNTHELABO-F01200502621

PATIENT
  Sex: Male

DRUGS (7)
  1. ELOXATIN [Suspect]
     Indication: COLORECTAL CANCER METASTATIC
     Route: 041
     Dates: start: 20051121, end: 20051121
  2. ELOXATIN [Suspect]
  3. XELODA [Suspect]
     Dosage: 1.5 G TWICE DAILY
     Route: 048
     Dates: start: 20051121, end: 20051124
  4. FOLINIC ACID [Suspect]
     Dosage: DOSE UNKNOWN
  5. FLUOROURACIL [Suspect]
     Dosage: DOSE UNKNOWN
  6. NAVOBAN [Concomitant]
     Indication: PROPHYLAXIS OF NAUSEA AND VOMITING
     Dosage: ONCE BEFORE OXALIPLATIN TREATMENT
     Route: 042
     Dates: start: 20051121, end: 20051121
  7. FORTECORTIN [Concomitant]
     Indication: PROPHYLAXIS
     Route: 042
     Dates: start: 20051121

REACTIONS (3)
  - ANURIA [None]
  - HYPERSENSITIVITY [None]
  - RENAL FAILURE ACUTE [None]
